FAERS Safety Report 9107713 (Version 1)
Quarter: 2013Q1

REPORT INFORMATION
  Report Type: Report from Study
  Country: US (occurrence: US)
  Receive Date: 20130221
  Receipt Date: 20130221
  Transmission Date: 20140127
  Serious: Yes (Hospitalization, Other)
  Sender: FDA-Public Use
  Company Number: US-ABBOTT-13P-163-1049080-00

PATIENT
  Sex: Female
  Weight: 60.38 kg

DRUGS (3)
  1. HUMIRA [Suspect]
     Indication: CROHN^S DISEASE
  2. HUMIRA [Suspect]
     Indication: PSORIASIS
  3. CLOBETASOL PROPIONATE [Concomitant]
     Dates: start: 201110

REACTIONS (5)
  - Anxiety [Recovering/Resolving]
  - Depression [Unknown]
  - Dizziness [Unknown]
  - Injection site pain [Unknown]
  - Inadequate diet [Unknown]
